FAERS Safety Report 7660088-1 (Version None)
Quarter: 2011Q3

REPORT INFORMATION
  Report Type: 
  Country: None (occurrence: None)
  Receive Date: 20110805
  Receipt Date: 20110722
  Transmission Date: 20111222
  Serious: Yes (Other)
  Sender: FDA-Public Use
  Company Number: PHHY2011BR66738

PATIENT
  Sex: Female

DRUGS (6)
  1. EXFORGE HCT [Suspect]
     Indication: HYPERTENSION
     Dosage: 1 DF (160/5/12.5 MG), UNK
     Route: 048
     Dates: start: 20110716, end: 20110721
  2. LEVOTHYROXINE SODIUM [Concomitant]
     Dosage: 100 UG, UNK
     Route: 065
  3. METOPROLOL SUCCINATE [Concomitant]
     Dosage: 50 MG, UNK
  4. OSCAL [Concomitant]
     Route: 065
  5. SOMALGIN [Concomitant]
     Dosage: 100 MG, UNK
     Route: 065
  6. EMAMA [Concomitant]
     Dosage: 400 MG, UNK

REACTIONS (3)
  - SWELLING FACE [None]
  - OEDEMA PERIPHERAL [None]
  - JOINT SWELLING [None]
